FAERS Safety Report 20746933 (Version 1)
Quarter: 2022Q2

REPORT INFORMATION
  Report Type: Spontaneous
  Country: EG (occurrence: EG)
  Receive Date: 20220425
  Receipt Date: 20220425
  Transmission Date: 20220721
  Serious: Yes (Death)
  Sender: FDA-Public Use
  Company Number: EG-PFIZER INC-202200610965

PATIENT
  Age: 71 Year
  Sex: Male

DRUGS (2)
  1. XALKORI [Suspect]
     Active Substance: CRIZOTINIB
     Indication: Renal cell carcinoma
     Dosage: 250 MG, 2X/DAY (TWICE DAILY)
     Route: 048
  2. NEXIUM I.V. [Concomitant]
     Active Substance: ESOMEPRAZOLE SODIUM
     Dosage: UNK, 2X/DAY (TWICE DAILY)

REACTIONS (2)
  - Cardiac arrest [Fatal]
  - Off label use [Unknown]
